FAERS Safety Report 11616226 (Version 2)
Quarter: 2015Q4

REPORT INFORMATION
  Report Type: Spontaneous
  Country: US (occurrence: None)
  Receive Date: 20151009
  Receipt Date: 20151015
  Transmission Date: 20160304
  Serious: Yes (Other)
  Sender: FDA-Public Use
  Company Number: US-MDT-ADR-2015-01930

PATIENT
  Age: 53 Year
  Sex: Female

DRUGS (1)
  1. BACLOFEN INTRATHECAL 500 MCG/ML [Suspect]
     Active Substance: BACLOFEN
     Indication: MUSCLE SPASTICITY
     Dosage: 181 MCG/DAY

REACTIONS (2)
  - Drug withdrawal syndrome [None]
  - Muscle spasticity [None]
